FAERS Safety Report 8060156-9 (Version None)
Quarter: 2012Q1

REPORT INFORMATION
  Report Type: 
  Country: None (occurrence: None)
  Receive Date: 20120119
  Receipt Date: 20120119
  Transmission Date: 20120608
  Serious: Yes (Hospitalization)
  Sender: FDA-Public Use
  Company Number: None

PATIENT
  Age: 88 Year
  Sex: Female
  Weight: 46.6 kg

DRUGS (9)
  1. FERROUS SULFATE TAB [Concomitant]
  2. COUMADIN [Suspect]
     Dosage: 2.5 MG DAILY PO CHRONIC
     Route: 048
  3. LIPITOR [Concomitant]
  4. AZOPT [Concomitant]
  5. LASIX [Concomitant]
  6. CALCITRIOL [Concomitant]
  7. CALCIUM CARBONATE [Concomitant]
  8. AMIODARONE HCL [Suspect]
     Dosage: 100MG QPM PO  CHRONIC
     Route: 048
  9. GUMMY VITE [Concomitant]

REACTIONS (6)
  - HAEMATOCRIT ABNORMAL [None]
  - HAEMOGLOBIN ABNORMAL [None]
  - INTERNATIONAL NORMALISED RATIO INCREASED [None]
  - RECTAL HAEMORRHAGE [None]
  - RECTAL CANCER [None]
  - INCORRECT DOSE ADMINISTERED [None]
